FAERS Safety Report 17936645 (Version 2)
Quarter: 2021Q1

REPORT INFORMATION
  Report Type: Spontaneous
  Country: DE (occurrence: DE)
  Receive Date: 20200624
  Receipt Date: 20210116
  Transmission Date: 20210419
  Serious: Yes (Hospitalization)
  Sender: FDA-Public Use
  Company Number: DE-ACCORD-186491

PATIENT
  Age: 83 Year
  Sex: Male

DRUGS (7)
  1. LEVOTHYROXINE. [Concomitant]
     Active Substance: LEVOTHYROXINE
     Dosage: 0.025 MG, 1?0?0?0,  TABLETS
     Route: 048
  2. MOVICOL AROMA?FREE [Concomitant]
     Dosage: NK MG / DAY, NEED, SACHET
     Route: 048
  3. ATORVASTATIN [Concomitant]
     Active Substance: ATORVASTATIN
     Dosage: 80 MG, 0?0?1?0,
     Route: 048
  4. RIVAROXABAN [Concomitant]
     Active Substance: RIVAROXABAN
     Dosage: 15 MG, 1?0?0?0,  TABLETS
     Route: 048
  5. RAMIPRIL. [Interacting]
     Active Substance: RAMIPRIL
     Indication: PRODUCT USED FOR UNKNOWN INDICATION
     Dosage: 5 MG, 1?0?0?0
     Route: 048
  6. HYDROCHLOROTHIAZIDE. [Suspect]
     Active Substance: HYDROCHLOROTHIAZIDE
     Indication: PRODUCT USED FOR UNKNOWN INDICATION
     Dosage: 25 MG, 1?0?0?0
     Route: 048
  7. METOPROLOL. [Interacting]
     Active Substance: METOPROLOL
     Indication: PRODUCT USED FOR UNKNOWN INDICATION
     Dosage: 95 MG, 1?0?1?0,
     Route: 048

REACTIONS (10)
  - Product prescribing error [Unknown]
  - Atrial fibrillation [Unknown]
  - Dysuria [Unknown]
  - Troponin increased [Unknown]
  - Tachycardia [Unknown]
  - Labelled drug-drug interaction medication error [Unknown]
  - Infection [Unknown]
  - Cognitive disorder [Unknown]
  - Gait disturbance [Unknown]
  - Renal impairment [Unknown]
